FAERS Safety Report 6874213-3 (Version None)
Quarter: 2010Q3

REPORT INFORMATION
  Report Type: 
  Country: None (occurrence: None)
  Receive Date: 20100723
  Receipt Date: 20090923
  Transmission Date: 20110219
  Serious: No
  Sender: FDA-Public Use
  Company Number: US-PFIZER INC-2009212491

PATIENT
  Sex: Female
  Weight: 52.2 kg

DRUGS (1)
  1. CHANTIX [Suspect]
     Indication: SMOKING CESSATION THERAPY
     Dosage: 1 MG, 2X/DAY
     Route: 048
     Dates: start: 20090422, end: 20090504

REACTIONS (11)
  - BREATH SOUNDS ABNORMAL [None]
  - EYE PRURITUS [None]
  - FEELING ABNORMAL [None]
  - HYPERSENSITIVITY [None]
  - LYMPHADENOPATHY [None]
  - NASOPHARYNGITIS [None]
  - OROPHARYNGEAL PAIN [None]
  - RHINORRHOEA [None]
  - SINUS CONGESTION [None]
  - SINUS DISORDER [None]
  - THROAT IRRITATION [None]
